FAERS Safety Report 4463958-0 (Version None)
Quarter: 2004Q4

REPORT INFORMATION
  Report Type: 
  Country: None (occurrence: None)
  Receive Date: 20041001
  Receipt Date: 20040708
  Transmission Date: 20050328
  Serious: Yes (Hospitalization)
  Sender: FDA-Public Use
  Company Number: US-BRISTOL-MYERS SQUIBB COMPANY-12635355

PATIENT
  Age: 81 Year
  Sex: Female
  Weight: 77 kg

DRUGS (4)
  1. CAPTOPRIL [Suspect]
     Indication: HYPERTENSION
     Dosage: BEGAN ABOUT SET-OCT-2003
     Route: 048
     Dates: start: 20030101
  2. CARDIZEM CD [Concomitant]
  3. SYNTHROID [Concomitant]
  4. LIPITOR [Concomitant]

REACTIONS (4)
  - COUGH [None]
  - FOOD POISONING [None]
  - HYPOGLYCAEMIA [None]
  - ORAL DISCHARGE [None]
